FAERS Safety Report 8462597-4 (Version None)
Quarter: 2012Q2

REPORT INFORMATION
  Report Type: 
  Country: None (occurrence: None)
  Receive Date: 20120625
  Receipt Date: 20120508
  Transmission Date: 20120825
  Serious: No
  Sender: FDA-Public Use
  Company Number: US-BAUSCH-2012BL003080

PATIENT
  Age: 38 Year
  Sex: Female

DRUGS (4)
  1. BESIVANCE [Suspect]
     Indication: OFF LABEL USE
     Route: 047
     Dates: start: 20120426, end: 20120501
  2. BROMDAY [Concomitant]
  3. PRED FORTE [Concomitant]
  4. BESIVANCE [Suspect]
     Indication: POSTOPERATIVE CARE
     Route: 047
     Dates: start: 20120426, end: 20120501

REACTIONS (4)
  - WRONG TECHNIQUE IN DRUG USAGE PROCESS [None]
  - RETINAL PIGMENT EPITHELIOPATHY [None]
  - CORNEAL THICKENING [None]
  - IMPAIRED HEALING [None]
